FAERS Safety Report 18336173 (Version 2)
Quarter: 2020Q4

REPORT INFORMATION
  Report Type: Report from Study
  Country: FR (occurrence: FR)
  Receive Date: 20201001
  Receipt Date: 20201008
  Transmission Date: 20210113
  Serious: Yes (Hospitalization)
  Sender: FDA-Public Use
  Company Number: FR-SHIRE-FR202031720

PATIENT

DRUGS (8)
  1. TEDUGLUTIDE [Suspect]
     Active Substance: TEDUGLUTIDE
     Indication: SHORT-BOWEL SYNDROME
     Dosage: 1.5 MILLIGRAM (0.05 MILLIGRAM/KILOGRAM), 7 DOSES PER WEEK
     Route: 065
     Dates: start: 20190605
  2. CEFIXIME. [Concomitant]
     Active Substance: CEFIXIME
     Indication: URINARY TRACT INFECTION
  3. VITAMIN A NOS [Concomitant]
     Active Substance: VITAMIN A
     Indication: VITAMIN A DEFICIENCY
  4. TEDUGLUTIDE [Suspect]
     Active Substance: TEDUGLUTIDE
     Indication: SHORT-BOWEL SYNDROME
     Dosage: 1.5 MILLIGRAM (0.05 MILLIGRAM/KILOGRAM), 7 DOSES PER WEEK
     Route: 065
     Dates: start: 20190605
  5. BIONOLYTE GLUCOSE [Concomitant]
     Indication: BLOOD DISORDER
  6. CLAFORAN [Concomitant]
     Active Substance: CEFOTAXIME SODIUM
     Indication: URINARY TRACT INFECTION
  7. TEDUGLUTIDE [Suspect]
     Active Substance: TEDUGLUTIDE
     Indication: SHORT-BOWEL SYNDROME
     Dosage: 1.5 MILLIGRAM (0.05 MILLIGRAM/KILOGRAM), 7 DOSES PER WEEK
     Route: 065
     Dates: start: 20190605
  8. TEDUGLUTIDE [Suspect]
     Active Substance: TEDUGLUTIDE
     Indication: SHORT-BOWEL SYNDROME
     Dosage: 1.5 MILLIGRAM (0.05 MILLIGRAM/KILOGRAM), 7 DOSES PER WEEK
     Route: 065
     Dates: start: 20190605

REACTIONS (1)
  - Pyrexia [Recovered/Resolved]

NARRATIVE: CASE EVENT DATE: 20200520
